FAERS Safety Report 4851804-2 (Version None)
Quarter: 2005Q4

REPORT INFORMATION
  Report Type: 
  Country: None (occurrence: None)
  Receive Date: 20051209
  Receipt Date: 20051129
  Transmission Date: 20060501
  Serious: Yes (Life-Threatening, Other)
  Sender: FDA-Public Use
  Company Number: 2005135317

PATIENT
  Age: 72 Year
  Sex: Female
  Weight: 77 kg

DRUGS (4)
  1. ATORVASTATIN CALCIUM [Suspect]
     Indication: HYPERCHOLESTEROLAEMIA
     Dosage: 20 MG (20 MG, DAILY), ORAL
     Route: 048
     Dates: start: 20040130
  2. HYPERIUM (RILMENIDINE) [Concomitant]
  3. COZAAR [Concomitant]
  4. ALDALIX (FUROSEMIDE, SPIRONOLACTONE) [Concomitant]

REACTIONS (3)
  - HYPERTENSION [None]
  - ISCHAEMIC STROKE [None]
  - THROMBOCYTHAEMIA [None]
